FAERS Safety Report 4736618-6 (Version None)
Quarter: 2005Q3

REPORT INFORMATION
  Report Type: 
  Country: None (occurrence: None)
  Receive Date: 20050808
  Receipt Date: 20050727
  Transmission Date: 20060218
  Serious: Yes (Other)
  Sender: FDA-Public Use
  Company Number: US-AMGEN-US142394

PATIENT
  Sex: Male
  Weight: 45.4 kg

DRUGS (8)
  1. EPOGEN [Suspect]
     Indication: DIALYSIS
     Route: 042
     Dates: start: 20040729
  2. ALLOPURINOL [Concomitant]
     Dates: start: 20040729
  3. RISPERDAL [Concomitant]
     Dates: start: 20040729
  4. ZOLOFT [Concomitant]
     Dates: start: 20040729
  5. NITROGLYCERIN [Concomitant]
  6. NICARDIPINE HCL [Concomitant]
  7. VENOFER [Concomitant]
     Route: 042
  8. ZEMPLAR (ABBOTT LABORATORIES) [Concomitant]
     Route: 042

REACTIONS (7)
  - ASTHENIA [None]
  - ATRIAL FIBRILLATION [None]
  - BONE MARROW DISORDER [None]
  - ECCHYMOSIS [None]
  - FATIGUE [None]
  - MYELOFIBROSIS [None]
  - NEOPLASM MALIGNANT [None]
